FAERS Safety Report 17435460 (Version 2)
Quarter: 2020Q1

REPORT INFORMATION
  Report Type: Spontaneous
  Country: DZ (occurrence: DZ)
  Receive Date: 20200219
  Receipt Date: 20200324
  Transmission Date: 20200409
  Serious: Yes (Other)
  Sender: FDA-Public Use
  Company Number: DZ-IPSEN BIOPHARMACEUTICALS, INC.-2020-03305

PATIENT
  Age: 23 Year
  Sex: Female
  Weight: 74 kg

DRUGS (3)
  1. SOMATULINE L.P. [Suspect]
     Active Substance: LANREOTIDE ACETATE
     Indication: SECRETORY ADENOMA OF PITUITARY
     Route: 030
     Dates: start: 201402, end: 20160229
  2. CABERGOLINE. [Suspect]
     Active Substance: CABERGOLINE
     Indication: SECRETORY ADENOMA OF PITUITARY
     Dosage: 7 CAPS/WEEK
     Route: 048
     Dates: start: 2013
  3. SOMATULINE L.P. [Suspect]
     Active Substance: LANREOTIDE ACETATE
     Indication: OFF LABEL USE

REACTIONS (3)
  - Off label use [Unknown]
  - Bile duct stenosis [Recovered/Resolved]
  - Cholelithiasis [Recovered/Resolved]

NARRATIVE: CASE EVENT DATE: 201402
